FAERS Safety Report 7693249-6 (Version None)
Quarter: 2011Q3

REPORT INFORMATION
  Report Type: 
  Country: None (occurrence: None)
  Receive Date: 20110819
  Receipt Date: 20110816
  Transmission Date: 20111222
  Serious: Yes (Life-Threatening, Other)
  Sender: FDA-Public Use
  Company Number: NL-JNJFOC-20110806212

PATIENT
  Sex: Female
  Weight: 72 kg

DRUGS (1)
  1. RISPERDAL [Suspect]
     Indication: ASPERGER'S DISORDER
     Route: 048
     Dates: start: 20080825, end: 20090501

REACTIONS (1)
  - SUICIDAL IDEATION [None]
